FAERS Safety Report 4668949-2 (Version None)
Quarter: 2005Q2

REPORT INFORMATION
  Report Type: 
  Country: None (occurrence: None)
  Receive Date: 20050523
  Receipt Date: 20050512
  Transmission Date: 20051028
  Serious: Yes (Death, Life-Threatening, Hospitalization, Other)
  Sender: FDA-Public Use
  Company Number: US-GLAXOSMITHKLINE-A0558831A

PATIENT
  Sex: Female

DRUGS (1)
  1. NAVELBINE [Suspect]
     Indication: LUNG CANCER METASTATIC
     Route: 065
     Dates: start: 20040809, end: 20040809

REACTIONS (21)
  - ABDOMINAL DISTENSION [None]
  - ANOREXIA [None]
  - ASTHENIA [None]
  - BLOOD GLUCOSE INCREASED [None]
  - CHILLS [None]
  - CONSTIPATION [None]
  - DIARRHOEA [None]
  - FATIGUE [None]
  - GINGIVAL PAIN [None]
  - HAEMORRHAGE [None]
  - HEADACHE [None]
  - INSOMNIA [None]
  - MULTI-ORGAN FAILURE [None]
  - NAUSEA [None]
  - NECROSIS [None]
  - ORAL FUNGAL INFECTION [None]
  - PHARYNGOLARYNGEAL PAIN [None]
  - PYREXIA [None]
  - SEPSIS [None]
  - TREMOR [None]
  - VOMITING [None]
